FAERS Safety Report 15798325 (Version 1)
Quarter: 2019Q1

REPORT INFORMATION
  Report Type: Spontaneous
  Country: DE (occurrence: DE)
  Receive Date: 20190108
  Receipt Date: 20190108
  Transmission Date: 20190417
  Serious: Yes (Other)
  Sender: FDA-Public Use
  Company Number: DE-MYLANLABS-2019M1000125

PATIENT

DRUGS (1)
  1. MYCOPHENOLATE MOFETIL. [Suspect]
     Active Substance: MYCOPHENOLATE MOFETIL
     Indication: MORPHOEA
     Dosage: 40 MG/KG, QD
     Route: 065

REACTIONS (4)
  - Seizure [Unknown]
  - Morphoea [Unknown]
  - Product use in unapproved indication [Unknown]
  - Condition aggravated [Unknown]
